FAERS Safety Report 4688560-7 (Version None)
Quarter: 2005Q2

REPORT INFORMATION
  Report Type: 
  Country: None (occurrence: None)
  Receive Date: 20050613
  Receipt Date: 20050523
  Transmission Date: 20051028
  Serious: Yes (Hospitalization)
  Sender: FDA-Public Use
  Company Number: DE-ABBOTT-05P-062-0301785-00

PATIENT
  Age: 17 Year
  Sex: Male
  Weight: 87.4 kg

DRUGS (1)
  1. ERGENYL [Suspect]
     Indication: PETIT MAL EPILEPSY
     Dosage: NOT REPORTED
     Dates: start: 19750101, end: 19830301

REACTIONS (3)
  - JAUNDICE CHOLESTATIC [None]
  - PANCREATIC PSEUDOCYST [None]
  - PANCREATITIS CHRONIC [None]
